FAERS Safety Report 11875552 (Version 2)
Quarter: 2016Q1

REPORT INFORMATION
  Report Type: Spontaneous
  Country: JP (occurrence: JP)
  Receive Date: 20151229
  Receipt Date: 20160106
  Transmission Date: 20160526
  Serious: Yes (Other)
  Sender: FDA-Public Use
  Company Number: PHJP2015JP023690

PATIENT
  Sex: Female
  Weight: 2.85 kg

DRUGS (1)
  1. HYDROCHLOROTHIAZIDE,VALSARTAN [Suspect]
     Active Substance: HYDROCHLOROTHIAZIDE\VALSARTAN
     Indication: FOETAL EXPOSURE DURING PREGNANCY
     Dosage: UNK
     Route: 064

REACTIONS (8)
  - Hydrops foetalis [Recovering/Resolving]
  - Polyuria [Not Recovered/Not Resolved]
  - Foetal exposure during pregnancy [Unknown]
  - Premature baby [Unknown]
  - Ascites [Recovered/Resolved]
  - Oedema [Recovered/Resolved]
  - Right ventricular failure [Unknown]
  - Pleural effusion [Recovered/Resolved]
